FAERS Safety Report 12847467 (Version 1)
Quarter: 2016Q4

REPORT INFORMATION
  Report Type: Spontaneous
  Country: CO (occurrence: CO)
  Receive Date: 20161014
  Receipt Date: 20161014
  Transmission Date: 20170207
  Serious: Yes (Hospitalization, Other)
  Sender: FDA-Public Use
  Company Number: CO-PFIZER INC-2016476068

PATIENT
  Age: 65 Year
  Sex: Female

DRUGS (1)
  1. XELJANZ [Suspect]
     Active Substance: TOFACITINIB CITRATE
     Indication: RHEUMATOID ARTHRITIS
     Dosage: 5 MG, 2X/DAY
     Route: 048
     Dates: start: 201603

REACTIONS (5)
  - Thrombosis [Recovered/Resolved with Sequelae]
  - Erysipelas [Recovering/Resolving]
  - Erythema [Recovering/Resolving]
  - Pulmonary thrombosis [Recovered/Resolved with Sequelae]
  - Vein disorder [Recovering/Resolving]

NARRATIVE: CASE EVENT DATE: 2016
